FAERS Safety Report 9746745 (Version 2)
Quarter: 2014Q1

REPORT INFORMATION
  Report Type: Spontaneous
  Country: DK (occurrence: DK)
  Receive Date: 20131211
  Receipt Date: 20140307
  Transmission Date: 20141002
  Serious: Yes (Life-Threatening, Hospitalization)
  Sender: FDA-Public Use
  Company Number: DK-JNJFOC-20131204642

PATIENT
  Age: 75 Year
  Sex: Male
  Weight: 85 kg

DRUGS (11)
  1. XARELTO [Suspect]
     Indication: CEREBROVASCULAR ACCIDENT PROPHYLAXIS
     Route: 048
     Dates: start: 20131109, end: 20131110
  2. XARELTO [Suspect]
     Indication: ATRIAL FIBRILLATION
     Route: 048
     Dates: start: 20131109, end: 20131110
  3. MAREVAN [Interacting]
     Indication: ATRIAL FIBRILLATION
     Route: 065
     Dates: start: 20131108
  4. METHOTREXAT [Concomitant]
     Indication: PSORIASIS
     Route: 065
  5. ZARATOR [Concomitant]
     Indication: HYPERCHOLESTEROLAEMIA
     Route: 065
  6. OMEPRAZOLE [Concomitant]
     Indication: GASTRIC PH DECREASED
     Route: 048
  7. BETOLVEX [Concomitant]
     Route: 048
  8. CONTALGIN [Concomitant]
     Indication: PAIN
     Route: 048
  9. METOPROLOL SUCCINATE [Concomitant]
     Indication: HYPERTENSION
     Route: 048
  10. NITROGLYCERIN [Concomitant]
     Route: 060
  11. FOLIC ACID [Concomitant]
     Route: 065

REACTIONS (4)
  - Cerebral haemorrhage [Not Recovered/Not Resolved]
  - Depressed level of consciousness [Unknown]
  - Convulsion [Recovered/Resolved]
  - Drug interaction [Unknown]
